FAERS Safety Report 6390964-1 (Version None)
Quarter: 2009Q4

REPORT INFORMATION
  Report Type: 
  Country: None (occurrence: None)
  Receive Date: 20091001
  Receipt Date: 20090806
  Transmission Date: 20100525
  Serious: Yes (Other)
  Sender: FDA-Public Use
  Company Number: 205086USA

PATIENT
  Sex: Female

DRUGS (3)
  1. CARVEDILOL [Suspect]
     Dosage: ORAL
     Route: 048
  2. CARVEDILOL [Suspect]
     Dosage: ORAL
     Route: 048
  3. COREG CR [Suspect]
     Dosage: ORAL

REACTIONS (3)
  - FALL [None]
  - FRACTURE [None]
  - SYNCOPE [None]
